FAERS Safety Report 5308720-1 (Version None)
Quarter: 2007Q2

REPORT INFORMATION
  Report Type: 
  Country: None (occurrence: None)
  Receive Date: 20070426
  Receipt Date: 20070420
  Transmission Date: 20071010
  Serious: Yes (Other)
  Sender: FDA-Public Use
  Company Number: NL-GLAXOSMITHKLINE-B0468031A

PATIENT
  Age: 63 Year
  Sex: Male

DRUGS (2)
  1. AMOXICILLIN [Suspect]
     Indication: DRUG USE FOR UNKNOWN INDICATION
     Route: 048
     Dates: start: 20070120, end: 20070130
  2. AUGMENTIN '125' [Suspect]
     Indication: PROSTATITIS
     Route: 048
     Dates: start: 20070205, end: 20070214

REACTIONS (7)
  - CHROMATURIA [None]
  - DECREASED APPETITE [None]
  - HEPATIC ENZYME INCREASED [None]
  - JAUNDICE [None]
  - JAUNDICE CHOLESTATIC [None]
  - OCULAR ICTERUS [None]
  - PRURITUS [None]
